FAERS Safety Report 10419431 (Version 1)
Quarter: 2014Q3

REPORT INFORMATION
  Report Type: Spontaneous
  Country: US (occurrence: US)
  Receive Date: 20140829
  Receipt Date: 20140829
  Transmission Date: 20150326
  Serious: Yes (Death, Hospitalization)
  Sender: FDA-Public Use
  Company Number: US-B.I. PHARMACEUTICALS,INC./RIDGEFIELD-2014-BI-39888BP

PATIENT
  Age: 78 Year
  Sex: Female

DRUGS (1)
  1. PRADAXA [Suspect]
     Active Substance: DABIGATRAN ETEXILATE MESYLATE
     Indication: PRODUCT USED FOR UNKNOWN INDICATION
     Route: 065

REACTIONS (7)
  - Hepatic failure [Unknown]
  - Disseminated intravascular coagulation [Unknown]
  - Acute respiratory failure [Fatal]
  - Gastrointestinal haemorrhage [Fatal]
  - Substance abuse [Unknown]
  - Hypovolaemic shock [Fatal]
  - Renal failure acute [Fatal]

NARRATIVE: CASE EVENT DATE: 20130511
